FAERS Safety Report 23522660 (Version 1)
Quarter: 2024Q1

REPORT INFORMATION
  Report Type: Spontaneous
  Country: US (occurrence: None)
  Receive Date: 20240213
  Receipt Date: 20240213
  Transmission Date: 20240409
  Serious: Yes (Disabling)
  Sender: FDA-Public Use
  Company Number: None

PATIENT
  Age: 17 Month
  Sex: Male
  Weight: 12.6 kg

DRUGS (2)
  1. MUPIROCIN [Suspect]
     Active Substance: MUPIROCIN
     Indication: Eczema
     Dosage: FREQUENCY : 3 TIMES A DAY;?
     Route: 061
  2. FLUOCINONIDE [Suspect]
     Active Substance: FLUOCINONIDE
     Indication: Eczema
     Dosage: FREQUENCY : TWICE A DAY;?
     Route: 061

REACTIONS (9)
  - Eczema [None]
  - Pruritus [None]
  - Rash [None]
  - Decreased appetite [None]
  - Peripheral swelling [None]
  - Peripheral swelling [None]
  - Dermatitis infected [None]
  - Feeling hot [None]
  - Incorrect product administration duration [None]

NARRATIVE: CASE EVENT DATE: 20221122
